FAERS Safety Report 7129012-4 (Version None)
Quarter: 2010Q4

REPORT INFORMATION
  Report Type: 
  Country: None (occurrence: None)
  Receive Date: 20101130
  Receipt Date: 20101116
  Transmission Date: 20110411
  Serious: Yes (Hospitalization)
  Sender: FDA-Public Use
  Company Number: GXKR2010GB12991

PATIENT
  Age: 38 Year
  Sex: Male

DRUGS (9)
  1. SULFAMETHOXAZOLE AND TRIMETHOPRIM [Suspect]
     Indication: PNEUMOCYSTIS JIROVECI INFECTION
     Dosage: 1920 MG, QID
     Route: 048
  2. SULFAMETHOXAZOLE AND TRIMETHOPRIM [Suspect]
     Indication: PROPHYLAXIS
     Dosage: 960 MG, QD
     Route: 048
  3. SULFAMETHOXAZOLE AND TRIMETHOPRIM [Suspect]
     Dosage: 3840 MG, BID
     Route: 042
  4. CLINDAMYCIN [Concomitant]
  5. PRIMAQUINE [Concomitant]
  6. PIPERACILLIN W/TAZOBACTAM [Concomitant]
     Route: 042
  7. CIPROFLOXACIN [Concomitant]
     Route: 042
  8. METHYLPREDNISOLONE [Concomitant]
     Dosage: 40 MG, QID
     Route: 042
  9. ATOVAQUONE [Concomitant]
     Indication: PROPHYLAXIS

REACTIONS (10)
  - CYANOSIS [None]
  - ENDOTRACHEAL INTUBATION [None]
  - HYPOTENSION [None]
  - MECHANICAL VENTILATION [None]
  - NAUSEA [None]
  - RALES [None]
  - RASH ERYTHEMATOUS [None]
  - SEPTIC SHOCK [None]
  - TACHYCARDIA [None]
  - VOMITING [None]
